FAERS Safety Report 7982796-5 (Version None)
Quarter: 2011Q4

REPORT INFORMATION
  Report Type: 
  Country: None (occurrence: None)
  Receive Date: 20111215
  Receipt Date: 20111206
  Transmission Date: 20120403
  Serious: Yes (Other)
  Sender: FDA-Public Use
  Company Number: US-BAYER-2011-075539

PATIENT
  Sex: Female
  Weight: 74.376 kg

DRUGS (2)
  1. YAZ [Suspect]
     Dosage: UNK
     Dates: start: 20010101, end: 20090101
  2. NAPROXEN [Concomitant]

REACTIONS (1)
  - GALLBLADDER INJURY [None]
